FAERS Safety Report 23384186 (Version 1)
Quarter: 2024Q1

REPORT INFORMATION
  Report Type: Report from Study
  Country: KR (occurrence: KR)
  Receive Date: 20240109
  Receipt Date: 20240109
  Transmission Date: 20240410
  Serious: Yes (Other)
  Sender: FDA-Public Use
  Company Number: KR-PFIZER INC-PV202400001634

PATIENT
  Age: 48 Year
  Sex: Male

DRUGS (1)
  1. METHOTREXATE SODIUM [Suspect]
     Active Substance: METHOTREXATE SODIUM
     Indication: Uveitis
     Dosage: 20 MG, WEEKLY; SELF-INJECTED USING A 31-GAUGE INSULIN SYRINGE
     Route: 058

REACTIONS (2)
  - Condition aggravated [Unknown]
  - Urticaria [Unknown]
